FAERS Safety Report 4771159-1 (Version None)
Quarter: 2005Q3

REPORT INFORMATION
  Report Type: 
  Country: None (occurrence: None)
  Receive Date: 20050912
  Receipt Date: 20050728
  Transmission Date: 20060218
  Serious: No
  Sender: FDA-Public Use
  Company Number: 2005-01247

PATIENT
  Age: 58 Year
  Sex: Female
  Weight: 85.3 kg

DRUGS (9)
  1. VELCADE [Suspect]
     Indication: MULTIPLE MYELOMA
     Dosage: 1.30 MG/M2, QD, IV BOLU
     Route: 040
     Dates: start: 20050208, end: 20050421
  2. ARANESP [Concomitant]
  3. ZOMETA [Concomitant]
  4. NEURONTIN [Concomitant]
  5. VITAMIN C (ASCORBIC ACID) [Concomitant]
  6. EXCELLIUM [Concomitant]
  7. ALOXIPRIN (ALOXIPRIN) [Concomitant]
  8. DECADRON [Concomitant]
  9. LORTAB (PARACETAMOL, HYDROCODONE BITRATRATE) [Concomitant]

REACTIONS (1)
  - PHOTOPSIA [None]
